FAERS Safety Report 7069838-9 (Version None)
Quarter: 2010Q4

REPORT INFORMATION
  Report Type: 
  Country: None (occurrence: None)
  Receive Date: 20101028
  Receipt Date: 20100802
  Transmission Date: 20110411
  Serious: No
  Sender: FDA-Public Use
  Company Number: US-WYE-H16047110

PATIENT
  Sex: Female
  Weight: 60.84 kg

DRUGS (4)
  1. PANTOPRAZOLE [Suspect]
     Indication: GASTROOESOPHAGEAL REFLUX DISEASE
     Route: 048
     Dates: start: 20060101, end: 20080101
  2. PANTOPRAZOLE [Suspect]
     Route: 048
     Dates: start: 20080101
  3. VITAMINS [Concomitant]
  4. SYNTHROID [Concomitant]

REACTIONS (1)
  - THROAT IRRITATION [None]
